FAERS Safety Report 5945303-4 (Version None)
Quarter: 2008Q4

REPORT INFORMATION
  Report Type: 
  Country: None (occurrence: None)
  Receive Date: 20081107
  Receipt Date: 20081028
  Transmission Date: 20090506
  Serious: Yes (Hospitalization, Other)
  Sender: FDA-Public Use
  Company Number: GB-ROCHE-594978

PATIENT
  Age: 19 Year
  Sex: Male

DRUGS (5)
  1. ISOTRETINOIN [Suspect]
     Indication: ACNE
     Route: 065
  2. MINOCYCLINE HCL [Concomitant]
  3. MINOCYCLINE HCL [Concomitant]
  4. ERYTHROMYCIN [Concomitant]
  5. CLINDAMYCIN HCL [Concomitant]

REACTIONS (6)
  - ABDOMINAL PAIN [None]
  - CYCLIC NEUTROPENIA [None]
  - FOLLICULITIS [None]
  - NORMOCHROMIC NORMOCYTIC ANAEMIA [None]
  - PYODERMA GANGRENOSUM [None]
  - THROMBOCYTOPENIA [None]
